FAERS Safety Report 17501238 (Version 1)
Quarter: 2020Q1

REPORT INFORMATION
  Report Type: Spontaneous
  Country: GB (occurrence: GB)
  Receive Date: 20200305
  Receipt Date: 20200305
  Transmission Date: 20200409
  Serious: Yes (Other)
  Sender: FDA-Public Use
  Company Number: GB-GLAXOSMITHKLINE-GB2020036417

PATIENT
  Age: 40 Year
  Sex: Female
  Weight: 129 kg

DRUGS (7)
  1. CYCLIZINE [Suspect]
     Active Substance: CYCLIZINE
     Indication: VOMITING
     Dosage: 50 MG, QOD
     Route: 048
  2. VENTOLIN [Suspect]
     Active Substance: ALBUTEROL SULFATE
     Indication: ASTHMA
     Dosage: 100 ?G, QD
     Route: 065
  3. AMIAS [Suspect]
     Active Substance: CANDESARTAN CILEXETIL
     Indication: PRODUCT USED FOR UNKNOWN INDICATION
     Dosage: 4 MG, QD
     Route: 048
  4. CLENIL MODULITE [Suspect]
     Active Substance: BECLOMETHASONE DIPROPIONATE
     Indication: ASTHMA
     Dosage: 100 ?G, QOD
     Route: 065
  5. MEPTAZINOL [Suspect]
     Active Substance: MEPTAZINOL HYDROCHLORIDE
     Indication: BACK PAIN
     Dosage: UNK UNK, QOD
     Route: 048
  6. DULOXETINE HYDROCHLORIDE. [Suspect]
     Active Substance: DULOXETINE HYDROCHLORIDE
     Indication: DEPRESSION
     Dosage: 90 MG, QD
     Route: 048
  7. SUMATRIPTAN. [Suspect]
     Active Substance: SUMATRIPTAN
     Indication: MIGRAINE
     Dosage: 1 STAT REPEAT AFTER 2HRS NEEDED
     Route: 048

REACTIONS (1)
  - Cough [Unknown]

NARRATIVE: CASE EVENT DATE: 20200215
